FAERS Safety Report 4865194-2 (Version None)
Quarter: 2005Q4

REPORT INFORMATION
  Report Type: 
  Country: None (occurrence: None)
  Receive Date: 20051223
  Receipt Date: 20041026
  Transmission Date: 20060501
  Serious: Yes (Hospitalization)
  Sender: FDA-Public Use
  Company Number: FR-GLAXOSMITHKLINE-B0349521A

PATIENT
  Age: 57 Year
  Sex: Female
  Weight: 107 kg

DRUGS (15)
  1. AVANDIA [Suspect]
     Dosage: 8MG THREE TIMES PER DAY
     Route: 048
     Dates: start: 20030101, end: 20041025
  2. LIPANTHYL [Suspect]
     Dosage: 227MG PER DAY
     Route: 048
  3. GLUCOPHAGE [Concomitant]
     Dosage: 1G THREE TIMES PER DAY
     Route: 048
  4. FERROGRAD [Concomitant]
     Dosage: 300MG PER DAY
     Route: 048
  5. LEVOTHYROXINE SODIUM [Concomitant]
     Dosage: 62.5MCG PER DAY
     Route: 048
  6. TIRATRICOL [Concomitant]
     Dosage: 1UNIT PER DAY
     Route: 048
  7. ETIOVEN [Concomitant]
     Route: 048
  8. GABACET [Concomitant]
     Route: 048
  9. LOBAMINE CYSTEINE [Concomitant]
     Route: 048
  10. EUPHYTOSE [Concomitant]
     Dosage: 4UNIT PER DAY
     Route: 048
  11. TANAKAN [Concomitant]
     Dosage: 1UNIT PER DAY
     Route: 048
     Dates: end: 20041025
  12. VASOBRAL [Concomitant]
     Dosage: 1UNIT PER DAY
     Route: 048
     Dates: end: 20041025
  13. AVLOCARDYL [Concomitant]
     Dosage: 40MG PER DAY
     Route: 048
     Dates: end: 20041025
  14. PLAVIX [Concomitant]
     Dosage: 75MG PER DAY
     Route: 048
  15. LYSOPAINE [Concomitant]
     Dosage: 6UNIT PER DAY
     Route: 048

REACTIONS (8)
  - ACCIDENTAL OVERDOSE [None]
  - ANAEMIA [None]
  - ASTHENIA [None]
  - MUSCLE SPASMS [None]
  - MUSCULAR WEAKNESS [None]
  - MYALGIA [None]
  - RHABDOMYOLYSIS [None]
  - WEIGHT INCREASED [None]
